FAERS Safety Report 4540952-2 (Version None)
Quarter: 2004Q4

REPORT INFORMATION
  Report Type: 
  Country: None (occurrence: None)
  Receive Date: 20041229
  Receipt Date: 20041221
  Transmission Date: 20050328
  Serious: Yes (Other)
  Sender: FDA-Public Use
  Company Number: SE-GLAXOSMITHKLINE-B0363012A

PATIENT
  Age: 8 Year
  Sex: Female

DRUGS (2)
  1. FORTUM [Suspect]
     Indication: SYSTEMIC LUPUS ERYTHEMATOSUS
  2. STEROIDS [Concomitant]

REACTIONS (4)
  - ABDOMINAL PAIN [None]
  - HEPATOMEGALY [None]
  - PERICARDITIS [None]
  - TRANSAMINASES INCREASED [None]
